FAERS Safety Report 8327517-1 (Version None)
Quarter: 2012Q2

REPORT INFORMATION
  Report Type: 
  Country: None (occurrence: None)
  Receive Date: 20120430
  Receipt Date: 20120419
  Transmission Date: 20120825
  Serious: No
  Sender: FDA-Public Use
  Company Number: 2012SP021319

PATIENT
  Age: 20 Year
  Sex: Male

DRUGS (2)
  1. SAPHRIS [Suspect]
     Indication: PSYCHOTIC DISORDER
     Dosage: 10 MG;BID;SL ; 5 MG ; 5 MG;BID
     Route: 060
     Dates: start: 20120201
  2. FLUOXETINE [Concomitant]

REACTIONS (4)
  - WRONG TECHNIQUE IN DRUG USAGE PROCESS [None]
  - DYSPNOEA [None]
  - OFF LABEL USE [None]
  - SELF-MEDICATION [None]
